FAERS Safety Report 13571607 (Version 2)
Quarter: 2017Q2

REPORT INFORMATION
  Report Type: Spontaneous
  Country: IT (occurrence: IT)
  Receive Date: 20170523
  Receipt Date: 20170602
  Transmission Date: 20170830
  Serious: Yes (Hospitalization)
  Sender: FDA-Public Use
  Company Number: IT-AUROBINDO-AUR-APL-2017-34247

PATIENT
  Age: 42 Year
  Sex: Female

DRUGS (2)
  1. AMOXICILLIN+CLAVULANIC ACID [Suspect]
     Active Substance: AMOXICILLIN\CLAVULANIC ACID
     Indication: INFECTION
     Dosage: 1 DF, DAILY
     Route: 048
  2. OKI [Suspect]
     Active Substance: KETOPROFEN LYSINE
     Indication: INFLAMMATION
     Dosage: 1 POSOLOGICAL UNIT AS NECESSARY, DAILY
     Route: 048

REACTIONS (5)
  - Erythema [Recovering/Resolving]
  - Palatal oedema [Recovering/Resolving]
  - Eyelid oedema [Recovering/Resolving]
  - Palpitations [Recovering/Resolving]
  - Vomiting [Recovering/Resolving]

NARRATIVE: CASE EVENT DATE: 20170507
